FAERS Safety Report 20895504 (Version 1)
Quarter: 2022Q2

REPORT INFORMATION
  Report Type: Spontaneous
  Country: AU (occurrence: AU)
  Receive Date: 20220531
  Receipt Date: 20220531
  Transmission Date: 20220721
  Serious: No
  Sender: FDA-Public Use
  Company Number: AU-LUPIN PHARMACEUTICALS INC.-2022-07698

PATIENT
  Sex: Male

DRUGS (2)
  1. PREGABALIN [Suspect]
     Active Substance: PREGABALIN
     Indication: Pain
     Dosage: 2 DOSAGE FORM, BID (2 CAPSULES OF PREGABALIN IN THE MORNING AND 2 CAPSULES AT NIGHT)
     Route: 065
  2. PREGABALIN [Suspect]
     Active Substance: PREGABALIN
     Dosage: 25 MILLIGRAM (THE PATIENT TOOK ALL THE 56 CAPSULE)
     Route: 065

REACTIONS (1)
  - Intentional overdose [Unknown]
